FAERS Safety Report 7370667-7 (Version None)
Quarter: 2011Q1

REPORT INFORMATION
  Report Type: 
  Country: None (occurrence: None)
  Receive Date: 20110323
  Receipt Date: 20110317
  Transmission Date: 20110831
  Serious: Yes (Hospitalization)
  Sender: FDA-Public Use
  Company Number: IT-BAYER-2011-024574

PATIENT
  Sex: Female

DRUGS (2)
  1. IBUPROFEN [Suspect]
     Indication: HYPERPYREXIA
     Dosage: DAILY DOSE 20 MG/KG
     Route: 048
     Dates: start: 20110128, end: 20110128
  2. AMOXICILLIN [Suspect]
     Dosage: DAILY DOSE 10 ML
     Dates: start: 20110124, end: 20110129

REACTIONS (2)
  - RASH ERYTHEMATOUS [None]
  - COLD SWEAT [None]
